FAERS Safety Report 19977245 (Version 1)
Quarter: 2021Q4

REPORT INFORMATION
  Report Type: Report from Study
  Country: US (occurrence: US)
  Receive Date: 20211020
  Receipt Date: 20211020
  Transmission Date: 20220304
  Serious: Yes (Other)
  Sender: FDA-Public Use
  Company Number: US-TAKEDA-2021TUS036429

PATIENT
  Sex: Male

DRUGS (8)
  1. TEDUGLUTIDE [Suspect]
     Active Substance: TEDUGLUTIDE
     Indication: Short-bowel syndrome
     Dosage: 1.675 MILLIGRAM, QD
     Route: 058
     Dates: start: 20210518
  2. TEDUGLUTIDE [Suspect]
     Active Substance: TEDUGLUTIDE
     Indication: Short-bowel syndrome
     Dosage: 1.675 MILLIGRAM, QD
     Route: 058
     Dates: start: 20210518
  3. TEDUGLUTIDE [Suspect]
     Active Substance: TEDUGLUTIDE
     Indication: Short-bowel syndrome
     Dosage: 1.675 MILLIGRAM, QD
     Route: 058
     Dates: start: 20210518
  4. TEDUGLUTIDE [Suspect]
     Active Substance: TEDUGLUTIDE
     Indication: Short-bowel syndrome
     Dosage: 1.675 MILLIGRAM, QD
     Route: 058
     Dates: start: 20210518
  5. TEDUGLUTIDE [Suspect]
     Active Substance: TEDUGLUTIDE
     Dosage: 1.675 UNK
     Route: 058
     Dates: start: 202105
  6. TEDUGLUTIDE [Suspect]
     Active Substance: TEDUGLUTIDE
     Dosage: 1.675 UNK
     Route: 058
     Dates: start: 202105
  7. TEDUGLUTIDE [Suspect]
     Active Substance: TEDUGLUTIDE
     Dosage: 1.675 UNK
     Route: 058
     Dates: start: 202105
  8. TEDUGLUTIDE [Suspect]
     Active Substance: TEDUGLUTIDE
     Dosage: 1.675 UNK
     Route: 058
     Dates: start: 202105

REACTIONS (2)
  - Crohn^s disease [Unknown]
  - Stoma complication [Unknown]
